FAERS Safety Report 5890712-5 (Version None)
Quarter: 2008Q3

REPORT INFORMATION
  Report Type: 
  Country: None (occurrence: None)
  Receive Date: 20080922
  Receipt Date: 20060920
  Transmission Date: 20090109
  Serious: Yes (Hospitalization)
  Sender: FDA-Public Use
  Company Number: SE-ROCHE-585660

PATIENT
  Sex: Male

DRUGS (10)
  1. MYCOPHENOLATE MOFETIL [Suspect]
     Dosage: TAKEN DAILY. 500 MG/250 MG
     Route: 048
     Dates: start: 20040601
  2. CYCLOSPORINE [Concomitant]
     Indication: IMMUNOSUPPRESSION
     Dosage: TAKEN DAILY 50 MG/75 MG
     Route: 048
     Dates: start: 20040601
  3. PREDNISOLONE [Concomitant]
     Indication: IMMUNOSUPPRESSION
     Dosage: TAKEN DAILY
     Route: 048
     Dates: start: 20030310
  4. METOPROLOL TARTRATE [Concomitant]
     Indication: HYPERTENSION
     Dosage: TAKEN DAILY
     Route: 048
     Dates: start: 20051017
  5. CALCITRIOL [Concomitant]
     Indication: RENAL OSTEODYSTROPHY
     Dosage: TAKEN DAILY
     Route: 048
     Dates: start: 20050628
  6. FLUVASTATIN [Concomitant]
     Route: 048
     Dates: start: 20050628
  7. ALENDRONATE SODIUM [Concomitant]
     Indication: OSTEOPOROSIS PROPHYLAXIS
     Dosage: DRUG NAME: ALENDRON ACID
     Route: 048
     Dates: start: 20050628
  8. DARBEPOETIN ALFA [Concomitant]
     Dosage: DRUG NAME: DARBEPOETIN
     Route: 058
     Dates: start: 20050628
  9. BETAHISTINE [Concomitant]
     Indication: MENIERE'S DISEASE
     Dosage: DRUG NAME: BETAHISTIN LICENS 16+16MG
     Route: 048
     Dates: start: 20020404
  10. ALVEDON [Concomitant]
     Dosage: 500 MG

REACTIONS (3)
  - FATIGUE [None]
  - RED BLOOD CELL SEDIMENTATION RATE INCREASED [None]
  - RENAL ATROPHY [None]
